FAERS Safety Report 7386051-6 (Version None)
Quarter: 2011Q1

REPORT INFORMATION
  Report Type: 
  Country: None (occurrence: None)
  Receive Date: 20110331
  Receipt Date: 20110321
  Transmission Date: 20110831
  Serious: Yes (Other)
  Sender: FDA-Public Use
  Company Number: IT-JNJFOC-20110309888

PATIENT

DRUGS (23)
  1. CYTARABINE [Suspect]
     Indication: LYMPHOCYTIC LEUKAEMIA
     Route: 037
  2. IFOSFAMIDE [Suspect]
     Indication: LYMPHOCYTIC LEUKAEMIA
     Route: 065
  3. DEXAMETHASONE [Suspect]
     Route: 048
  4. VINCRISTINE [Suspect]
     Route: 042
  5. CYTARABINE [Suspect]
     Route: 037
  6. PREDNISOLONE [Suspect]
     Indication: LYMPHOCYTIC LEUKAEMIA
     Route: 037
  7. PREDNISOLONE [Suspect]
     Route: 037
  8. TENIPOSIDE [Suspect]
     Indication: LYMPHOCYTIC LEUKAEMIA
  9. CYTARABINE [Suspect]
     Route: 037
  10. CYCLOPHOSPHAMIDE [Suspect]
     Indication: PREMEDICATION
     Route: 065
  11. DOXORUBICIN HCL [Suspect]
     Indication: LYMPHOCYTIC LEUKAEMIA
     Route: 042
  12. VINCRISTINE [Suspect]
     Indication: LYMPHOCYTIC LEUKAEMIA
     Route: 042
  13. PREDNISONE [Suspect]
     Indication: PREMEDICATION
     Route: 048
  14. METHOTREXATE [Suspect]
     Route: 037
  15. CYCLOPHOSPHAMIDE [Suspect]
     Route: 065
  16. METHOTREXATE [Suspect]
     Route: 037
  17. CYCLOPHOSPHAMIDE [Suspect]
     Route: 065
  18. PREDNISONE [Suspect]
     Indication: LYMPHOCYTIC LEUKAEMIA
     Route: 048
  19. LEUCOVORIN CALCIUM [Concomitant]
     Route: 042
  20. METHOTREXATE [Suspect]
     Indication: LYMPHOCYTIC LEUKAEMIA
     Route: 037
  21. DEXAMETHASONE [Suspect]
     Indication: LYMPHOCYTIC LEUKAEMIA
     Route: 048
  22. PREDNISOLONE [Suspect]
     Route: 037
  23. CYCLOPHOSPHAMIDE [Suspect]
     Indication: LYMPHOCYTIC LEUKAEMIA
     Route: 065

REACTIONS (2)
  - RENAL FAILURE [None]
  - TUMOUR LYSIS SYNDROME [None]
